FAERS Safety Report 20118358 (Version 6)
Quarter: 2022Q4

REPORT INFORMATION
  Report Type: Other
  Country: IT (occurrence: None)
  Receive Date: 20211126
  Receipt Date: 20221117
  Transmission Date: 20230113
  Serious: Yes (Other)
  Sender: FDA-Public Use
  Company Number: IT-ROCHE-2514683

PATIENT
  Age: 49 Year
  Sex: Female

DRUGS (6)
  1. OBINUTUZUMAB [Suspect]
     Active Substance: OBINUTUZUMAB
     Indication: Follicular lymphoma
     Dosage: INDUCTION PHASE: 1000 MILLIGRAM (MG) INTRAVENOUSLY (IV) ON DAY 1, 8, 15 OF CYCLE 1 AN DAY 1 OF CYCLE
     Route: 042
     Dates: start: 20190715
  2. OBINUTUZUMAB [Suspect]
     Active Substance: OBINUTUZUMAB
     Dosage: 1000 MG IV EVERY 2 MONTHS FOR 2 YEARS OR UNTIL DISEASE PROGRESSION (WHATEVER OCCURS EARLIER)?CYCLE
     Route: 042
     Dates: start: 20190812
  3. OBINUTUZUMAB [Suspect]
     Active Substance: OBINUTUZUMAB
     Dosage: CYCLE 3?INDUCTION PHASE: 1000 MILLIGRAM (MG) INTRAVENOUSLY (IV) ON DAY 1, 8, 15 OF CYCLE 1 AN DAY 1
     Route: 042
     Dates: start: 20190912
  4. OBINUTUZUMAB [Suspect]
     Active Substance: OBINUTUZUMAB
     Dosage: CYCLE 4?INDUCTION PHASE: 1000 MILLIGRAM (MG) INTRAVENOUSLY (IV) ON DAY 1, 8, 15 OF CYCLE 1 AN DAY 1
     Route: 042
     Dates: start: 20191014
  5. OBINUTUZUMAB [Suspect]
     Active Substance: OBINUTUZUMAB
     Dosage: INDUCTION PHASE: 1000 MILLIGRAM (MG) INTRAVENOUSLY (IV) ON DAY 1, 8, 15 OF CYCLE 1 AN DAY 1 OF CYCLE
     Route: 042
     Dates: start: 20191111
  6. OBINUTUZUMAB [Suspect]
     Active Substance: OBINUTUZUMAB
     Dosage: CYCLE 6
     Route: 042
     Dates: start: 20191219

REACTIONS (12)
  - Paraesthesia [Recovered/Resolved]
  - Colitis [Recovered/Resolved]
  - Back pain [Recovered/Resolved]
  - Off label use [Unknown]
  - Ectopic gastric mucosa [Recovered/Resolved]
  - Uterine polyp [Recovered/Resolved]
  - Migraine with aura [Recovered/Resolved]
  - Carpal tunnel syndrome [Not Recovered/Not Resolved]
  - Eye infection viral [Recovered/Resolved]
  - Sinusitis [Recovered/Resolved]
  - Empty sella syndrome [Unknown]
  - Nasal turbinate hypertrophy [Unknown]

NARRATIVE: CASE EVENT DATE: 20191209
